FAERS Safety Report 7402937 (Version 5)
Quarter: 2014Q2

REPORT INFORMATION
  Report Type: Report from Study
  Country: US (occurrence: US)
  Receive Date: 20100528
  Receipt Date: 20140617
  Transmission Date: 20141212
  Serious: Yes (Other)
  Sender: FDA-Public Use
  Company Number: US-B.I. PHARMACEUTICALS,INC./RIDGEFIELD-2010-BP-05675BP

PATIENT
  Age: 39 Year
  Sex: Female

DRUGS (2)
  1. VIRAMUNE [Suspect]
     Indication: HIV INFECTION
     Dosage: 400 MG
     Route: 048
  2. COMBIVIR [Concomitant]
     Indication: HIV INFECTION
     Dosage: DAILY DOSE :2 TAB/CAPS
     Route: 048

REACTIONS (1)
  - Abortion spontaneous [Unknown]
